FAERS Safety Report 6945056-7 (Version None)
Quarter: 2010Q3

REPORT INFORMATION
  Report Type: 
  Country: None (occurrence: None)
  Receive Date: 20100827
  Receipt Date: 20100817
  Transmission Date: 20110219
  Serious: Yes (Other)
  Sender: FDA-Public Use
  Company Number: PHHY2010AR54378

PATIENT
  Sex: Female

DRUGS (2)
  1. DIOVAN [Suspect]
     Indication: BLOOD PRESSURE
     Dosage: 80 MG, ONE TABLET, DAILY
  2. DIOVAN [Suspect]
     Dosage: 160 MG, UNK

REACTIONS (2)
  - BLOOD PRESSURE SYSTOLIC INCREASED [None]
  - HYPERTENSIVE CRISIS [None]
